FAERS Safety Report 5390535-X (Version None)
Quarter: 2007Q3

REPORT INFORMATION
  Report Type: 
  Country: None (occurrence: None)
  Receive Date: 20070718
  Receipt Date: 20070413
  Transmission Date: 20080115
  Serious: No
  Sender: FDA-Public Use
  Company Number: US-KINGPHARMUSA00001-K200700477

PATIENT

DRUGS (4)
  1. LEVOXYL [Suspect]
     Indication: HYPOTHYROIDISM
     Dosage: 25 MCG, QD
     Route: 048
     Dates: start: 20050101, end: 20070301
  2. LEVOXYL [Suspect]
     Dosage: 12.5 MCG, QD
     Route: 048
     Dates: start: 20070301, end: 20070401
  3. LEVOXYL [Suspect]
     Dosage: 25 MCG, QD
     Route: 048
     Dates: start: 20070401
  4. VYTORIN [Suspect]
     Indication: BLOOD CHOLESTEROL INCREASED
     Dosage: UNK, QD
     Route: 048
     Dates: start: 20061101, end: 20070301

REACTIONS (2)
  - BACK PAIN [None]
  - LIVER FUNCTION TEST ABNORMAL [None]
